FAERS Safety Report 8490320-6 (Version None)
Quarter: 2012Q3

REPORT INFORMATION
  Report Type: 
  Country: None (occurrence: None)
  Receive Date: 20120705
  Receipt Date: 20120628
  Transmission Date: 20120928
  Serious: Yes (Hospitalization, Other)
  Sender: FDA-Public Use
  Company Number: US-BAXTER-2012BAX010225

PATIENT
  Age: 50 Year
  Sex: Male

DRUGS (5)
  1. HEPARIN SODIUM [Suspect]
     Indication: ANTICOAGULANT THERAPY
     Route: 040
  2. COUMADIN [Concomitant]
  3. HEPARIN SODIUM [Suspect]
  4. ALEMTUZUMAB [Concomitant]
     Route: 042
  5. ALEMTUZUMAB [Concomitant]
     Indication: IMMUNOSUPPRESSANT DRUG THERAPY
     Route: 042

REACTIONS (3)
  - HEPARIN-INDUCED THROMBOCYTOPENIA [None]
  - GRAFT THROMBOSIS [None]
  - GRAFT LOSS [None]
